FAERS Safety Report 11883113 (Version 1)
Quarter: 2015Q4

REPORT INFORMATION
  Report Type: Spontaneous
  Country: FR (occurrence: FR)
  Receive Date: 20151231
  Receipt Date: 20151231
  Transmission Date: 20160305
  Serious: Yes (Hospitalization)
  Sender: FDA-Public Use
  Company Number: FR-JNJFOC-20151224715

PATIENT
  Age: 75 Year
  Sex: Male

DRUGS (5)
  1. XARELTO [Suspect]
     Active Substance: RIVAROXABAN
     Indication: CARDIOVASCULAR EVENT PROPHYLAXIS
     Route: 048
     Dates: start: 20151108, end: 20151202
  2. CORDARON [Suspect]
     Active Substance: AMIODARONE HYDROCHLORIDE
     Indication: ARRHYTHMIA
     Route: 048
     Dates: start: 20151108, end: 20151202
  3. CARDENSIEL [Suspect]
     Active Substance: BISOPROLOL FUMARATE
     Indication: TACHYCARDIA
     Route: 048
     Dates: start: 20151108, end: 20151202
  4. LOVENOX [Concomitant]
     Active Substance: ENOXAPARIN SODIUM
     Route: 065
     Dates: start: 20151202
  5. FLECAINE [Concomitant]
     Active Substance: FLECAINIDE
     Route: 065
     Dates: start: 20151202

REACTIONS (4)
  - Rash pruritic [Recovered/Resolved]
  - Lymphadenopathy [Recovered/Resolved]
  - Eosinophilia [Recovered/Resolved]
  - Oedema genital [Recovered/Resolved]

NARRATIVE: CASE EVENT DATE: 20151124
